FAERS Safety Report 6940168-6 (Version None)
Quarter: 2010Q3

REPORT INFORMATION
  Report Type: 
  Country: None (occurrence: None)
  Receive Date: 20100825
  Receipt Date: 20100811
  Transmission Date: 20110219
  Serious: Yes (Other)
  Sender: FDA-Public Use
  Company Number: PK-CELGENEUS-124-20785-10080996

PATIENT
  Age: 55 Year
  Sex: Female

DRUGS (3)
  1. THALIDOMIDE [Suspect]
     Indication: MULTIPLE MYELOMA
     Route: 048
  2. THALIDOMIDE [Suspect]
     Dosage: REDUCED DOSAGE
     Route: 048
  3. DEXAMETHASONE [Concomitant]
     Indication: MULTIPLE MYELOMA
     Route: 065

REACTIONS (9)
  - BONE LESION [None]
  - DYSPNOEA [None]
  - FATIGUE [None]
  - LEUKAEMIA PLASMACYTIC [None]
  - PLEURAL EFFUSION [None]
  - PNEUMOTHORAX [None]
  - PRODUCTIVE COUGH [None]
  - PULMONARY CONGESTION [None]
  - SOMNOLENCE [None]
